FAERS Safety Report 20616341 (Version 1)
Quarter: 2022Q1

REPORT INFORMATION
  Report Type: Spontaneous
  Country: US (occurrence: None)
  Receive Date: 20220321
  Receipt Date: 20220321
  Transmission Date: 20220423
  Serious: Yes (unspecified)
  Sender: FDA-Public Use
  Company Number: None

PATIENT
  Age: 67 Year
  Sex: Male

DRUGS (1)
  1. LISINOPRIL AND HYDROCHLOROTHIAZIDE [Suspect]
     Active Substance: HYDROCHLOROTHIAZIDE\LISINOPRIL
     Indication: Hypertension
     Dosage: OTHER QUANTITY : 25/20MG;?FREQUENCY : DAILY;?
     Route: 048
     Dates: start: 20210415, end: 20220224

REACTIONS (1)
  - Angioedema [None]

NARRATIVE: CASE EVENT DATE: 20220224
